FAERS Safety Report 21486389 (Version 1)
Quarter: 2022Q4

REPORT INFORMATION
  Report Type: Spontaneous
  Country: TW (occurrence: TW)
  Receive Date: 20221020
  Receipt Date: 20221020
  Transmission Date: 20230113
  Serious: Yes (Other)
  Sender: FDA-Public Use
  Company Number: TW-BAYER-2022A141181

PATIENT
  Sex: Male

DRUGS (1)
  1. XOFIGO [Suspect]
     Active Substance: RADIUM RA-223 DICHLORIDE
     Dosage: UNK
     Dates: start: 2022, end: 2022

REACTIONS (3)
  - Gastric haemorrhage [None]
  - COVID-19 [None]
  - Blood test abnormal [None]

NARRATIVE: CASE EVENT DATE: 20220101
